FAERS Safety Report 20278597 (Version 3)
Quarter: 2022Q4

REPORT INFORMATION
  Report Type: Report from Study
  Country: US (occurrence: US)
  Receive Date: 20220103
  Receipt Date: 20221104
  Transmission Date: 20230113
  Serious: No
  Sender: FDA-Public Use
  Company Number: US-Ipsen Biopharmaceuticals, Inc.-2021-33145

PATIENT
  Age: 55 Year
  Sex: Male

DRUGS (4)
  1. SOMATULINE DEPOT [Suspect]
     Active Substance: LANREOTIDE ACETATE
     Indication: Acromegaly
     Dosage: 90 MG/0.3 ML EVERY 8 WEEKS (STRENGTH: 90 MG/0.3 ML)
     Route: 058
     Dates: start: 20181003
  2. VITAMIN A [Concomitant]
     Active Substance: VITAMIN A
  3. VITAMIN D3 [Concomitant]
     Active Substance: CHOLECALCIFEROL
  4. MELOXICAM [Concomitant]
     Active Substance: MELOXICAM
     Dosage: 15 MG

REACTIONS (4)
  - Abdominal discomfort [Recovered/Resolved with Sequelae]
  - Abdominal discomfort [Recovered/Resolved]
  - Off label use [Unknown]
  - Flatulence [Recovered/Resolved]

NARRATIVE: CASE EVENT DATE: 20181003
